FAERS Safety Report 10163864 (Version 1)
Quarter: 2014Q2

REPORT INFORMATION
  Report Type: Report from Study
  Country: US (occurrence: US)
  Receive Date: 20140509
  Receipt Date: 20140509
  Transmission Date: 20141212
  Serious: Yes (Hospitalization)
  Sender: FDA-Public Use
  Company Number: US-ABBVIE-14P-163-1233012-00

PATIENT
  Age: 68 Year
  Sex: Male
  Weight: 74.91 kg

DRUGS (4)
  1. HUMIRA [Suspect]
     Indication: PSORIASIS
     Dosage: ONCE
     Dates: start: 2009, end: 2009
  2. HUMIRA [Suspect]
     Dates: start: 2009, end: 2011
  3. HUMIRA [Suspect]
     Indication: PSORIASIS
     Dates: start: 2011, end: 20140417
  4. LOSARTAN [Concomitant]
     Indication: HYPERTENSION

REACTIONS (6)
  - Limb traumatic amputation [Recovered/Resolved]
  - Hand fracture [Recovering/Resolving]
  - Movement disorder [Not Recovered/Not Resolved]
  - Nerve injury [Not Recovered/Not Resolved]
  - Psoriasis [Not Recovered/Not Resolved]
  - Fall [Recovered/Resolved]
